FAERS Safety Report 6868857-2 (Version None)
Quarter: 2010Q3

REPORT INFORMATION
  Report Type: 
  Country: None (occurrence: None)
  Receive Date: 20100722
  Receipt Date: 20080809
  Transmission Date: 20110219
  Serious: No
  Sender: FDA-Public Use
  Company Number: US-PFIZER INC-2008051468

PATIENT
  Sex: Male
  Weight: 73.6 kg

DRUGS (3)
  1. CHANTIX [Suspect]
     Indication: SMOKING CESSATION THERAPY
     Dates: start: 20080608, end: 20080614
  2. CEFUROXIME AXETIL [Concomitant]
  3. SIMVASTATIN [Concomitant]

REACTIONS (4)
  - HEADACHE [None]
  - HYPERHIDROSIS [None]
  - MUSCULOSKELETAL STIFFNESS [None]
  - PYREXIA [None]
